FAERS Safety Report 25408568 (Version 1)
Quarter: 2025Q2

REPORT INFORMATION
  Report Type: Spontaneous
  Country: CN (occurrence: CN)
  Receive Date: 20250606
  Receipt Date: 20250606
  Transmission Date: 20250717
  Serious: Yes (Life-Threatening)
  Sender: ELI LILLY AND COMPANY
  Company Number: CN-Merck Healthcare KGaA-2025027893

PATIENT
  Age: 75 Year
  Sex: Male
  Weight: 46 kg

DRUGS (6)
  1. CETUXIMAB [Suspect]
     Active Substance: CETUXIMAB
     Indication: Laryngeal cancer
     Route: 041
     Dates: start: 20250519, end: 20250519
  2. DOCETAXEL [Suspect]
     Active Substance: DOCETAXEL
     Indication: Laryngeal cancer
     Dosage: 100 MG, DAILY
     Route: 041
     Dates: start: 20250519, end: 20250519
  3. CISPLATIN [Suspect]
     Active Substance: CISPLATIN
     Indication: Laryngeal cancer
     Dosage: 30 MG, DAILY
     Route: 041
     Dates: start: 20250519, end: 20250521
  4. SODIUM CHLORIDE [Concomitant]
     Active Substance: SODIUM CHLORIDE
     Indication: Medication dilution
     Dosage: 250 ML, DAILY
     Route: 041
     Dates: start: 20250519, end: 20250519
  5. SODIUM CHLORIDE [Concomitant]
     Active Substance: SODIUM CHLORIDE
     Dosage: 250 ML, DAILY
     Route: 041
     Dates: start: 20250519, end: 20250521
  6. CEFTRIAXONE SODIUM [Concomitant]
     Active Substance: CEFTRIAXONE SODIUM
     Indication: Infection prophylaxis

REACTIONS (1)
  - Myelosuppression [Unknown]

NARRATIVE: CASE EVENT DATE: 20250525
